FAERS Safety Report 9246579 (Version 1)
Quarter: 2013Q2

REPORT INFORMATION
  Report Type: Spontaneous
  Country: DE (occurrence: DE)
  Receive Date: 20130422
  Receipt Date: 20130422
  Transmission Date: 20140414
  Serious: Yes (Death, Hospitalization)
  Sender: FDA-Public Use
  Company Number: DE-ELI_LILLY_AND_COMPANY-DE201302005991

PATIENT
  Sex: Female

DRUGS (5)
  1. FORSTEO [Suspect]
     Indication: OSTEOPOROSIS
     Dosage: UNK, QD
     Route: 058
     Dates: start: 20120217, end: 201303
  2. PREDNISOLON [Concomitant]
     Dosage: 25 MG, UNKNOWN
  3. PREDNISOLON [Concomitant]
     Dosage: 10 MG, UNKNOWN
  4. OXYGEN [Concomitant]
  5. VITAMIN D NOS [Concomitant]

REACTIONS (6)
  - Pneumonia [Fatal]
  - Pulmonary oedema [Fatal]
  - Back pain [Not Recovered/Not Resolved]
  - Spinal column injury [Not Recovered/Not Resolved]
  - Abasia [Not Recovered/Not Resolved]
  - Aphagia [Not Recovered/Not Resolved]
